FAERS Safety Report 6760447-5 (Version None)
Quarter: 2010Q2

REPORT INFORMATION
  Report Type: 
  Country: None (occurrence: None)
  Receive Date: 20100604
  Receipt Date: 20100524
  Transmission Date: 20101027
  Serious: Yes (Hospitalization, Other)
  Sender: FDA-Public Use
  Company Number: 2010AP001071

PATIENT
  Age: 57 Year
  Sex: Female

DRUGS (3)
  1. OMEPRAZOLE [Suspect]
     Indication: GASTROOESOPHAGEAL REFLUX DISEASE
  2. PANTOPRAZOLE SODIUM [Suspect]
     Dosage: 40 MG; QD
  3. BENDROFLUMETHIAZIDE (BENDROFLUMETHIAZIDE) [Concomitant]

REACTIONS (14)
  - ASTHENIA [None]
  - BALANCE DISORDER [None]
  - DIZZINESS [None]
  - DYSPEPSIA [None]
  - EMOTIONAL DISTRESS [None]
  - FALL [None]
  - FATIGUE [None]
  - HYPOCALCAEMIA [None]
  - HYPOMAGNESAEMIA [None]
  - LETHARGY [None]
  - MUSCLE SPASMS [None]
  - NAUSEA [None]
  - PARAESTHESIA [None]
  - VOMITING [None]
